FAERS Safety Report 10029542 (Version 1)
Quarter: 2014Q1

REPORT INFORMATION
  Report Type: Spontaneous
  Country: US (occurrence: None)
  Receive Date: 20140320
  Receipt Date: 20140320
  Transmission Date: 20141002
  Serious: Yes (Other)
  Sender: FDA-Public Use
  Company Number: None

PATIENT
  Age: 40 Year
  Sex: Female
  Weight: 62.6 kg

DRUGS (2)
  1. METAXALONE [Suspect]
     Indication: MUSCLE SPASMS
     Dosage: 1 PILL ?AT BEDTIME?TAKEN BY MOUTH?LITTLE OVER A MONTH
     Route: 048
  2. METAXALONE [Suspect]
     Indication: MULTIPLE SCLEROSIS
     Dosage: 1 PILL ?AT BEDTIME?TAKEN BY MOUTH?LITTLE OVER A MONTH
     Route: 048

REACTIONS (3)
  - Muscle spasms [None]
  - Condition aggravated [None]
  - Product substitution issue [None]
